FAERS Safety Report 14216563 (Version 2)
Quarter: 2018Q3

REPORT INFORMATION
  Report Type: Spontaneous
  Country: JP (occurrence: JP)
  Receive Date: 20171122
  Receipt Date: 20180803
  Transmission Date: 20181010
  Serious: Yes (Hospitalization, Other)
  Sender: FDA-Public Use
  Company Number: JP-SPECTRUM PHARMACEUTICALS, INC.-17-F-JP-00361

PATIENT
  Age: 65 Year
  Sex: Male

DRUGS (7)
  1. FOLOTYN [Suspect]
     Active Substance: PRALATREXATE
     Dosage: 10 MG/M2, QD
     Route: 042
     Dates: start: 20171124
  2. PANVITAN                           /05664201/ [Concomitant]
     Active Substance: VITAMINS
     Indication: PROPHYLAXIS
     Dosage: 2 G, QD
     Route: 048
     Dates: start: 20171002
  3. FOLOTYN [Suspect]
     Active Substance: PRALATREXATE
     Indication: PRODUCT USED FOR UNKNOWN INDICATION
     Dosage: 26 MG/M2, UNK
     Route: 042
     Dates: start: 20171017
  4. FOLOTYN [Suspect]
     Active Substance: PRALATREXATE
     Dosage: 10 MG/M2, QD
     Route: 042
     Dates: start: 20171114
  5. VITAMIN B12 [Concomitant]
     Active Substance: CYANOCOBALAMIN
     Indication: PROPHYLAXIS
     Dosage: 1000 UG, UNK
     Route: 030
     Dates: start: 20171002
  6. LEUCOVORIN                         /00566701/ [Concomitant]
     Active Substance: LEUCOVORIN
     Indication: PROPHYLAXIS
     Dosage: 30 MG, QD
     Route: 042
     Dates: start: 20171116, end: 20171119
  7. LEUCOVORIN                         /00566701/ [Concomitant]
     Active Substance: LEUCOVORIN
     Dosage: 30 MG, QD
     Route: 042
     Dates: start: 20171126, end: 20171129

REACTIONS (3)
  - Pneumonia [Unknown]
  - Disease progression [Unknown]
  - Stomatitis [Recovering/Resolving]

NARRATIVE: CASE EVENT DATE: 201710
